FAERS Safety Report 21063638 (Version 1)
Quarter: 2022Q3

REPORT INFORMATION
  Report Type: Spontaneous
  Country: US (occurrence: None)
  Receive Date: 20220708
  Receipt Date: 20220708
  Transmission Date: 20221026
  Serious: Yes (Hospitalization)
  Sender: FDA-Public Use
  Company Number: None

PATIENT
  Age: 78 Year
  Sex: Male
  Weight: 76.2 kg

DRUGS (1)
  1. BEBTELOVIMAB [Suspect]
     Active Substance: BEBTELOVIMAB
     Indication: COVID-19
     Dosage: OTHER FREQUENCY : ONCE;?
     Route: 042
     Dates: start: 20220707, end: 20220707

REACTIONS (5)
  - Nausea [None]
  - Loss of consciousness [None]
  - Generalised tonic-clonic seizure [None]
  - Infusion related reaction [None]
  - Daydreaming [None]

NARRATIVE: CASE EVENT DATE: 20220707
